FAERS Safety Report 9563600 (Version 1)
Quarter: 2013Q3

REPORT INFORMATION
  Report Type: Spontaneous
  Country: DE (occurrence: None)
  Receive Date: 20130926
  Receipt Date: 20130926
  Transmission Date: 20140515
  Serious: Yes (Hospitalization, Other)
  Sender: FDA-Public Use
  Company Number: FK201304320

PATIENT
  Age: 5 Year
  Sex: Female

DRUGS (1)
  1. DEXAMETHASONE SODIUM PHOSPHATE [Suspect]
     Indication: PROPHYLAXIS

REACTIONS (15)
  - Encephalopathy [None]
  - Central nervous system lesion [None]
  - Maternal drugs affecting foetus [None]
  - Adrenogenital syndrome [None]
  - Lethargy [None]
  - Hypoglycaemia [None]
  - Upper respiratory tract infection [None]
  - Gastroenteritis [None]
  - Loss of consciousness [None]
  - Blood pressure decreased [None]
  - Eye movement disorder [None]
  - Brain oedema [None]
  - Cerebrovascular accident [None]
  - Visual impairment [None]
  - Partial seizures [None]
